FAERS Safety Report 8619437-X (Version None)
Quarter: 2012Q3

REPORT INFORMATION
  Report Type: 
  Country: None (occurrence: None)
  Receive Date: 20120824
  Receipt Date: 20120814
  Transmission Date: 20120928
  Serious: Yes (Death, Hospitalization)
  Sender: FDA-Public Use
  Company Number: AU-BRISTOL-MYERS SQUIBB COMPANY-16722175

PATIENT
  Age: 87 Year
  Sex: Female
  Weight: 98 kg

DRUGS (12)
  1. ORENCIA [Suspect]
     Indication: RHEUMATOID ARTHRITIS
     Dosage: INTER ON 8JUN12 NO OF DOSES 4 LAST DOSE ON 7JUN12,8JUN12
     Route: 042
     Dates: start: 20120413, end: 20120607
  2. SERTRALINE HYDROCHLORIDE [Concomitant]
  3. ALLOPURINOL [Concomitant]
  4. SIMVASTATIN [Concomitant]
  5. WARFARIN SODIUM [Concomitant]
  6. ZOLPIDEM [Concomitant]
  7. ALDACTONE [Concomitant]
  8. VITAMIN D [Concomitant]
  9. LEVOTHYROXINE SODIUM [Concomitant]
  10. DIGOXIN [Concomitant]
  11. FUROSEMIDE [Concomitant]
  12. CALCIUM CARBONATE [Concomitant]

REACTIONS (4)
  - LOWER RESPIRATORY TRACT INFECTION [None]
  - OEDEMA PERIPHERAL [None]
  - PNEUMONIA [None]
  - TACHYCARDIA [None]
